FAERS Safety Report 6209760-0 (Version None)
Quarter: 2009Q2

REPORT INFORMATION
  Report Type: 
  Country: None (occurrence: None)
  Receive Date: 20090601
  Receipt Date: 20090429
  Transmission Date: 20091009
  Serious: No
  Sender: FDA-Public Use
  Company Number: US-BAYER-200919529NA

PATIENT
  Age: 26 Year
  Sex: Female
  Weight: 93 kg

DRUGS (1)
  1. YAZ [Suspect]
     Indication: ENDOMETRIOSIS
     Route: 048
     Dates: start: 20090324, end: 20090419

REACTIONS (2)
  - HEADACHE [None]
  - SKIN DISCOLOURATION [None]
